FAERS Safety Report 20356954 (Version 1)
Quarter: 2022Q1

REPORT INFORMATION
  Report Type: Spontaneous
  Country: FR (occurrence: FR)
  Receive Date: 20220120
  Receipt Date: 20220120
  Transmission Date: 20220424
  Serious: Yes (Hospitalization)
  Sender: FDA-Public Use
  Company Number: None

PATIENT
  Age: 70 Year
  Sex: Female

DRUGS (6)
  1. OXALIPLATIN [Suspect]
     Active Substance: OXALIPLATIN
     Indication: Adenocarcinoma of colon
     Dosage: OXALIPLATINE
     Route: 041
     Dates: start: 20211119, end: 20211119
  2. FLUOROURACIL [Concomitant]
     Active Substance: FLUOROURACIL
     Indication: Adenocarcinoma of colon
     Route: 041
     Dates: start: 20211119, end: 20211119
  3. FLUOROURACIL\LEUCOVORIN CALCIUM\OXALIPLATIN [Concomitant]
     Active Substance: FLUOROURACIL\LEUCOVORIN CALCIUM\OXALIPLATIN
     Dosage: - FROM APRIL 10 TO JUNE 05, 2019: 4 COURSES OF FOLFOX (5-FLUOROURACIL - OXALIPLATIN - FOLINIC ACID)
     Dates: start: 20190410, end: 20190605
  4. FLUOROURACIL\LEUCOVORIN CALCIUM\OXALIPLATIN [Concomitant]
     Active Substance: FLUOROURACIL\LEUCOVORIN CALCIUM\OXALIPLATIN
     Dosage: - 07/30/2019, ADJUVANT CHEMOTHERAPY WITH FOLFOX 6 COURSES
  5. FLUOROURACIL\LEUCOVORIN CALCIUM\OXALIPLATIN [Concomitant]
     Active Substance: FLUOROURACIL\LEUCOVORIN CALCIUM\OXALIPLATIN
     Dosage: - FOLFOX ADJUVANT: 6 CURES CARRIED OUT FROM 08/16/2019 TO 10/29/2019
     Dates: start: 20190816, end: 20191029
  6. FLUOROURACIL\LEUCOVORIN CALCIUM\OXALIPLATIN [Concomitant]
     Active Substance: FLUOROURACIL\LEUCOVORIN CALCIUM\OXALIPLATIN
     Dosage: - 09/16/2021: ADJUVANT CHEMOTHERAPY WITH FOLFOX  5FU DEPENDING ON SEQUELAE TOXICITY FOR 6 TO 12 COUR

REACTIONS (4)
  - Chest discomfort [Recovered/Resolved]
  - Infusion related hypersensitivity reaction [Recovered/Resolved]
  - Pharyngeal oedema [Recovered/Resolved]
  - Erythema [Recovered/Resolved]

NARRATIVE: CASE EVENT DATE: 20211119
